FAERS Safety Report 4577580-9 (Version None)
Quarter: 2005Q1

REPORT INFORMATION
  Report Type: 
  Country: None (occurrence: None)
  Receive Date: 20050208
  Receipt Date: 20050127
  Transmission Date: 20050727
  Serious: Yes (Other)
  Sender: FDA-Public Use
  Company Number: 2004S1000183

PATIENT
  Age: 35 Year
  Sex: Male

DRUGS (3)
  1. ACITRETIN (ACITRETIN) [Suspect]
     Indication: PSORIASIS
     Dosage: 35 MG; QD; ORAL
     Route: 048
     Dates: start: 20040909
  2. BETHAMETASONE SODIUM [Concomitant]
  3. PHOSPHATE [Concomitant]

REACTIONS (3)
  - HYPERTENSION [None]
  - RED BLOOD CELL COUNT INCREASED [None]
  - WHITE BLOOD CELL COUNT INCREASED [None]
